FAERS Safety Report 5353012-8 (Version None)
Quarter: 2007Q2

REPORT INFORMATION
  Report Type: 
  Country: None (occurrence: None)
  Receive Date: 20070611
  Receipt Date: 20070531
  Transmission Date: 20071010
  Serious: Yes (Other)
  Sender: FDA-Public Use
  Company Number: JP-PFIZER INC-2007033323

PATIENT
  Sex: Male

DRUGS (5)
  1. LIPITOR [Suspect]
     Indication: HYPERCHOLESTEROLAEMIA
     Route: 048
     Dates: start: 20030211, end: 20031101
  2. LIPITOR [Suspect]
     Route: 048
     Dates: start: 20031101, end: 20040501
  3. LIPITOR [Suspect]
     Dosage: DAILY DOSE:5MG-FREQ:EVERY OTHER DAY
     Route: 048
     Dates: start: 20040501, end: 20041001
  4. LIPITOR [Suspect]
     Route: 048
     Dates: start: 20041001, end: 20050801
  5. LIPITOR [Suspect]
     Dosage: DAILY DOSE:5MG-FREQ:EVERY OTHER DAY
     Route: 048
     Dates: start: 20050801, end: 20070406

REACTIONS (2)
  - BLOOD CREATINE PHOSPHOKINASE INCREASED [None]
  - HEPATIC FUNCTION ABNORMAL [None]
